FAERS Safety Report 4833973-3 (Version None)
Quarter: 2005Q4

REPORT INFORMATION
  Report Type: 
  Country: None (occurrence: None)
  Receive Date: 20051122
  Receipt Date: 20051018
  Transmission Date: 20060501
  Serious: Yes (Hospitalization)
  Sender: FDA-Public Use
  Company Number: US-AMGEN-US154798

PATIENT
  Sex: Female
  Weight: 52.7 kg

DRUGS (3)
  1. ENBREL [Suspect]
     Indication: JUVENILE ARTHRITIS
     Route: 058
     Dates: start: 20050307, end: 20050914
  2. METHOTREXATE [Concomitant]
     Route: 058
     Dates: start: 20041214, end: 20050921
  3. FOLIC ACID [Concomitant]
     Dates: start: 20041214, end: 20050921

REACTIONS (4)
  - HISTOPLASMOSIS [None]
  - PHARYNGOLARYNGEAL PAIN [None]
  - PYREXIA [None]
  - SYSTEMIC MYCOSIS [None]
